FAERS Safety Report 6129209-6 (Version None)
Quarter: 2009Q1

REPORT INFORMATION
  Report Type: 
  Country: None (occurrence: None)
  Receive Date: 20090323
  Receipt Date: 20090323
  Transmission Date: 20090719
  Serious: Yes (Life-Threatening)
  Sender: FDA-Public Use
  Company Number: None

PATIENT
  Age: 60 Year
  Sex: Male
  Weight: 79.3795 kg

DRUGS (5)
  1. DILTIAZEM [Suspect]
     Indication: PROPHYLAXIS
     Dosage: 240MG QID ORALLY DAILY PO
     Route: 048
     Dates: start: 20090311, end: 20090319
  2. PLAVIX [Concomitant]
  3. NITROGLYCERIN [Concomitant]
  4. LIPITOR [Concomitant]
  5. ISOSORBIDE MONO ER [Concomitant]

REACTIONS (5)
  - ANGINA PECTORIS [None]
  - ASTHENIA [None]
  - GENERAL PHYSICAL HEALTH DETERIORATION [None]
  - LETHARGY [None]
  - PRODUCT QUALITY ISSUE [None]
